FAERS Safety Report 4521284-5 (Version None)
Quarter: 2004Q4

REPORT INFORMATION
  Report Type: 
  Country: None (occurrence: None)
  Receive Date: 20041203
  Receipt Date: 20041124
  Transmission Date: 20050328
  Serious: Yes (Death, Life-Threatening, Hospitalization)
  Sender: FDA-Public Use
  Company Number: K200401809

PATIENT
  Age: 80 Year
  Sex: Female

DRUGS (6)
  1. ALTACE [Suspect]
     Dosage: ORAL
     Route: 048
  2. CERVOXAN (VINBURNINE) CAPSULE [Suspect]
     Dosage: ORAL
     Route: 048
  3. HEMIGOXINE NATIVELLE (DIGOXIN) TABLET [Suspect]
     Dosage: ORAL
     Route: 048
  4. PREVISCAN (FLUINDIONE) [Suspect]
     Dosage: ORAL
     Route: 048
  5. OXYPHYLLINE (ETOFYLLINE) [Suspect]
     Dosage: ORAL
     Route: 048
  6. DIETARY SUPLEMMENTS )( 4U [Suspect]
     Dosage: 4 U, QD, ORAL
     Route: 048
     Dates: start: 20040417, end: 20040417

REACTIONS (3)
  - GASTROINTESTINAL HAEMORRHAGE [None]
  - LEUKOCYTOCLASTIC VASCULITIS [None]
  - NECROSIS [None]
